FAERS Safety Report 5443530-6 (Version None)
Quarter: 2007Q3

REPORT INFORMATION
  Report Type: 
  Country: None (occurrence: None)
  Receive Date: 20070905
  Receipt Date: 20070831
  Transmission Date: 20080115
  Serious: Yes (Hospitalization)
  Sender: FDA-Public Use
  Company Number: US-JNJFOC-20070700886

PATIENT
  Age: 52 Year
  Sex: Female
  Weight: 77.11 kg

DRUGS (4)
  1. IBUPROFEN [Suspect]
     Indication: PAIN
  2. ADVIL SINUS [Suspect]
     Indication: SINUS DISORDER
  3. SYNTHROID [Concomitant]
     Indication: THYROID DISORDER
  4. PREDNISONE [Concomitant]
     Indication: SWELLING

REACTIONS (3)
  - CHEST PAIN [None]
  - LIP SWELLING [None]
  - URTICARIA [None]
